FAERS Safety Report 16840503 (Version 1)
Quarter: 2019Q3

REPORT INFORMATION
  Report Type: Spontaneous
  Country: US (occurrence: US)
  Receive Date: 20190923
  Receipt Date: 20190923
  Transmission Date: 20191005
  Serious: Yes (Other)
  Sender: FDA-Public Use
  Company Number: US-PFIZER INC-2019401658

PATIENT
  Age: 68 Year
  Sex: Male
  Weight: 68.4 kg

DRUGS (4)
  1. PLAVIX [Concomitant]
     Active Substance: CLOPIDOGREL BISULFATE
     Indication: STENT PLACEMENT
     Dosage: 75 MG, DAILY
     Route: 048
  2. VFEND [Suspect]
     Active Substance: VORICONAZOLE
     Indication: PULMONARY MYCOSIS
     Dosage: UNK, ONCE DAILY
     Route: 048
  3. ATORVASTATIN [Concomitant]
     Active Substance: ATORVASTATIN
     Indication: STENT PLACEMENT
     Dosage: 40 MG, DAILY
     Route: 048
  4. VFEND [Suspect]
     Active Substance: VORICONAZOLE
     Indication: COCCIDIOIDOMYCOSIS
     Dosage: 200 MG, 2X/DAY
     Route: 048

REACTIONS (3)
  - Cough [Not Recovered/Not Resolved]
  - Pulmonary haemorrhage [Unknown]
  - Blood urine present [Not Recovered/Not Resolved]

NARRATIVE: CASE EVENT DATE: 20190914
